FAERS Safety Report 6910893-1 (Version None)
Quarter: 2010Q3

REPORT INFORMATION
  Report Type: 
  Country: None (occurrence: None)
  Receive Date: 20100806
  Receipt Date: 20100727
  Transmission Date: 20110219
  Serious: Yes (Other)
  Sender: FDA-Public Use
  Company Number: US-PFIZER INC-2009274859

PATIENT
  Sex: Female

DRUGS (8)
  1. DETROL [Suspect]
     Dosage: 5 MG, 1X/DAY
     Dates: start: 20090501, end: 20090501
  2. TOVIAZ [Suspect]
     Indication: HYPERTONIC BLADDER
     Dosage: 8 MG, 1X/DAY
     Route: 048
     Dates: start: 20090601
  3. TOVIAZ [Suspect]
     Dosage: 4 MG, 1X/DAY
     Dates: start: 20090601
  4. VESICARE [Suspect]
     Indication: HYPERTONIC BLADDER
     Dosage: 5 MG, 1X/DAY
     Route: 048
     Dates: end: 20090923
  5. XALATAN [Concomitant]
     Indication: OPEN ANGLE GLAUCOMA
     Dosage: UNK
  6. ACETAMINOPHEN [Concomitant]
     Indication: LYMPHOEDEMA
     Dosage: UNK
  7. ACETAMINOPHEN [Concomitant]
     Indication: PAIN
  8. ACETAMINOPHEN [Concomitant]
     Indication: ARTHRITIS

REACTIONS (6)
  - CIRCUMSTANCE OR INFORMATION CAPABLE OF LEADING TO MEDICATION ERROR [None]
  - CONSTIPATION [None]
  - PHARYNGEAL OEDEMA [None]
  - SWOLLEN TONGUE [None]
  - UNEVALUABLE EVENT [None]
  - VISION BLURRED [None]
